FAERS Safety Report 5329845-0 (Version None)
Quarter: 2007Q2

REPORT INFORMATION
  Report Type: 
  Country: None (occurrence: None)
  Receive Date: 20070521
  Receipt Date: 20070510
  Transmission Date: 20071010
  Serious: Yes (Other)
  Sender: FDA-Public Use
  Company Number: JP-ROCHE-454289

PATIENT
  Age: 10 Year
  Sex: Male
  Weight: 29 kg

DRUGS (6)
  1. TAMIFLU [Suspect]
     Dosage: FORM REPORTED AS DRY SYRUP.
     Route: 048
     Dates: start: 20060608, end: 20060608
  2. TAMIFLU [Suspect]
     Route: 048
     Dates: start: 20060609, end: 20060612
  3. TAMIFLU [Suspect]
     Route: 048
     Dates: start: 20060613, end: 20060613
  4. UNSPECIFIED DRUG [Concomitant]
     Dosage: DRUG NAME REPORTED AS HUSTEN.
     Route: 048
     Dates: start: 20060608, end: 20060613
  5. MUCOTRON [Concomitant]
     Route: 048
     Dates: start: 20060608, end: 20060613
  6. ANYRUME [Concomitant]
     Dosage: 1.5 GRAM TAKEN AS NEEDED.
     Route: 048

REACTIONS (1)
  - DELIRIUM [None]
